FAERS Safety Report 6591533-0 (Version None)
Quarter: 2010Q1

REPORT INFORMATION
  Report Type: 
  Country: None (occurrence: None)
  Receive Date: 20100220
  Receipt Date: 20091123
  Transmission Date: 20100710
  Serious: Yes (Life-Threatening, Hospitalization)
  Sender: FDA-Public Use
  Company Number: HR-JNJFOC-20091106832

PATIENT
  Age: 38 Year
  Sex: Male

DRUGS (8)
  1. RISPOLEPT [Suspect]
     Indication: POST-TRAUMATIC STRESS DISORDER
     Dosage: 1,0,2.
     Route: 048
  2. RISPOLEPT [Suspect]
     Dosage: ATTEMPTED SUICIDE BY SWALLOWING 4 BOXES
     Route: 048
  3. RISPOLEPT [Suspect]
     Indication: SCHIZOPHRENIA
     Dosage: ATTEMPTED SUICIDE BY SWALLOWING 4 BOXES
     Route: 048
  4. RISPOLEPT [Suspect]
     Dosage: 1,0,2.
     Route: 048
  5. RISPOLEPT CONSTA [Suspect]
     Indication: POST-TRAUMATIC STRESS DISORDER
     Route: 030
  6. RISPOLEPT CONSTA [Suspect]
     Indication: SCHIZOPHRENIA
     Route: 030
  7. LEPONEX [Suspect]
     Indication: DRUG USE FOR UNKNOWN INDICATION
     Route: 065
  8. TEGRETOL [Suspect]
     Indication: DRUG USE FOR UNKNOWN INDICATION
     Route: 065

REACTIONS (5)
  - COMA [None]
  - CYANOSIS [None]
  - LETHARGY [None]
  - MULTIPLE DRUG OVERDOSE INTENTIONAL [None]
  - SUICIDE ATTEMPT [None]
